FAERS Safety Report 5016525-4 (Version None)
Quarter: 2006Q2

REPORT INFORMATION
  Report Type: 
  Country: None (occurrence: None)
  Receive Date: 20060602
  Receipt Date: 20060324
  Transmission Date: 20061013
  Serious: Yes (Death, Hospitalization)
  Sender: FDA-Public Use
  Company Number: DE-ABBOTT-06P-062-0329057-00

PATIENT
  Sex: Female
  Weight: 35 kg

DRUGS (4)
  1. ERGENYL ^SANOFI WINTHROP^ [Suspect]
     Indication: DRUG USE FOR UNKNOWN INDICATION
     Route: 048
     Dates: start: 20050813, end: 20050813
  2. BACLOFEN [Suspect]
     Indication: DRUG USE FOR UNKNOWN INDICATION
     Route: 048
     Dates: start: 20050813, end: 20050813
  3. LAMOTRIGINE [Suspect]
     Indication: DRUG USE FOR UNKNOWN INDICATION
     Route: 048
     Dates: start: 20050813, end: 20050813
  4. CONCENTRATED SODIUM CHLORIDE SOLUTION [Suspect]
     Indication: SELF-INDUCED VOMITING
     Route: 048
     Dates: start: 20050813

REACTIONS (5)
  - ACCIDENTAL EXPOSURE [None]
  - ACCIDENTAL OVERDOSE [None]
  - BRAIN OEDEMA [None]
  - HYPERNATRAEMIA [None]
  - VOMITING [None]
